FAERS Safety Report 24350186 (Version 1)
Quarter: 2024Q3

REPORT INFORMATION
  Report Type: Report from Study
  Country: CA (occurrence: CA)
  Receive Date: 20240923
  Receipt Date: 20240923
  Transmission Date: 20241016
  Serious: No
  Sender: ROCHE
  Company Number: CA-ROCHE-3500857

PATIENT
  Sex: Female
  Weight: 64.0 kg

DRUGS (2)
  1. HERCEPTIN [Suspect]
     Active Substance: TRASTUZUMAB
     Indication: Neoadjuvant therapy
     Route: 065
     Dates: start: 20230627, end: 20231108
  2. KADCYLA [Suspect]
     Active Substance: ADO-TRASTUZUMAB EMTANSINE
     Indication: Adjuvant therapy
     Route: 065

REACTIONS (1)
  - Drug intolerance [Unknown]
